FAERS Safety Report 8367964-5 (Version None)
Quarter: 2012Q2

REPORT INFORMATION
  Report Type: 
  Country: None (occurrence: None)
  Receive Date: 20120517
  Receipt Date: 20120514
  Transmission Date: 20120825
  Serious: Yes (Other)
  Sender: FDA-Public Use
  Company Number: US-ROCHE-1049937

PATIENT
  Sex: Female

DRUGS (1)
  1. ZELBORAF [Suspect]
     Indication: PRODUCT USED FOR UNKNOWN INDICATION

REACTIONS (6)
  - CRYING [None]
  - DECREASED APPETITE [None]
  - ARTHRALGIA [None]
  - RASH PRURITIC [None]
  - ALOPECIA [None]
  - DISEASE PROGRESSION [None]
